FAERS Safety Report 6366257-5 (Version None)
Quarter: 2009Q3

REPORT INFORMATION
  Report Type: 
  Country: None (occurrence: None)
  Receive Date: 20090915
  Receipt Date: 20090831
  Transmission Date: 20100115
  Serious: Yes (Hospitalization)
  Sender: FDA-Public Use
  Company Number: AUR-APL-2009-00550

PATIENT
  Age: 72 Year
  Sex: Female

DRUGS (2)
  1. MIRTAZAPINE [Suspect]
     Dosage: 5 X 30MG, ONCE, ORAL
     Route: 048
  2. PANADOL OSTEO [Suspect]
     Dosage: 119 X 665MG, ONCE, ORAL
     Route: 048

REACTIONS (5)
  - ALANINE AMINOTRANSFERASE INCREASED [None]
  - ASPARTATE AMINOTRANSFERASE INCREASED [None]
  - BLOOD PRESSURE SYSTOLIC INCREASED [None]
  - INCORRECT DOSE ADMINISTERED [None]
  - SOMNOLENCE [None]
